FAERS Safety Report 6821654-6 (Version None)
Quarter: 2010Q3

REPORT INFORMATION
  Report Type: 
  Country: None (occurrence: None)
  Receive Date: 20100707
  Receipt Date: 20090524
  Transmission Date: 20110219
  Serious: No
  Sender: FDA-Public Use
  Company Number: US-PFIZER INC-2009197818

PATIENT
  Sex: Female
  Weight: 58.957 kg

DRUGS (2)
  1. SERTRALINE HCL [Suspect]
     Indication: ANXIETY
     Dosage: 25 MG, 1X/DAY
     Dates: start: 20080401
  2. SERTRALINE HCL [Suspect]
     Indication: DEPRESSION

REACTIONS (2)
  - MALAISE [None]
  - NERVOUSNESS [None]
